FAERS Safety Report 15884081 (Version 3)
Quarter: 2019Q3

REPORT INFORMATION
  Report Type: Report from Study
  Country: US (occurrence: US)
  Receive Date: 20190129
  Receipt Date: 20190814
  Transmission Date: 20191004
  Serious: Yes (Death)
  Sender: FDA-Public Use
  Company Number: US-PUMA BIOTECHNOLOGY, LTD.-2019US000905

PATIENT

DRUGS (2)
  1. NERLYNX [Suspect]
     Active Substance: NERATINIB
     Indication: MALIGNANT NIPPLE NEOPLASM
  2. NERLYNX [Suspect]
     Active Substance: NERATINIB
     Indication: BREAST CANCER
     Route: 048

REACTIONS (3)
  - Off label use [Unknown]
  - Metastases to central nervous system [Unknown]
  - Death [Fatal]

NARRATIVE: CASE EVENT DATE: 20181228
